FAERS Safety Report 5642890-0 (Version None)
Quarter: 2008Q1

REPORT INFORMATION
  Report Type: 
  Country: None (occurrence: None)
  Receive Date: 20080228
  Receipt Date: 20080221
  Transmission Date: 20080703
  Serious: Yes (Life-Threatening, Hospitalization, Other)
  Sender: FDA-Public Use
  Company Number: PHEH2008US01779

PATIENT
  Age: 11 Year
  Sex: Female
  Weight: 28.3 kg

DRUGS (4)
  1. TRILEPTAL [Concomitant]
     Indication: CONVULSION
     Dosage: 300 MG, BID
     Route: 048
  2. TYLENOL W/ CODEINE [Concomitant]
     Dosage: UNK, PRN
  3. MOTRIN [Concomitant]
     Dosage: UNK, PRN
  4. EXJADE [Suspect]
     Indication: IRON OVERLOAD
     Dosage: 750MG, QD
     Route: 048
     Dates: start: 20061114, end: 20071219

REACTIONS (14)
  - ABDOMINAL PAIN [None]
  - ACTIVATED PARTIAL THROMBOPLASTIN TIME PROLONGED [None]
  - ALANINE AMINOTRANSFERASE INCREASED [None]
  - ANTI-HBS ANTIBODY POSITIVE [None]
  - ASPARTATE AMINOTRANSFERASE INCREASED [None]
  - BILIARY DYSKINESIA [None]
  - BLOOD BILIRUBIN INCREASED [None]
  - CYTOLYTIC HEPATITIS [None]
  - GALLBLADDER POLYP [None]
  - INTERNATIONAL NORMALISED RATIO INCREASED [None]
  - JAUNDICE [None]
  - PROTHROMBIN TIME PROLONGED [None]
  - VOMITING [None]
  - WHITE BLOOD CELL COUNT INCREASED [None]
